FAERS Safety Report 8551644-7 (Version None)
Quarter: 2012Q3

REPORT INFORMATION
  Report Type: 
  Country: None (occurrence: None)
  Receive Date: 20120730
  Receipt Date: 20120717
  Transmission Date: 20120928
  Serious: No
  Sender: FDA-Public Use
  Company Number: US-BAYER-2012-073858

PATIENT

DRUGS (2)
  1. NAPROXEN SODIUM [Suspect]
  2. FLECTOR [Concomitant]

REACTIONS (1)
  - ABDOMINAL PAIN UPPER [None]
